FAERS Safety Report 12387212 (Version 2)
Quarter: 2016Q4

REPORT INFORMATION
  Report Type: Report from Study
  Country: US (occurrence: US)
  Receive Date: 20160519
  Receipt Date: 20161206
  Transmission Date: 20170207
  Serious: Yes (Hospitalization, Other)
  Sender: FDA-Public Use
  Company Number: US-ACTELION-A-NJ2016-136268

PATIENT
  Age: 72 Year
  Sex: Female

DRUGS (11)
  1. TRAMADOL. [Concomitant]
     Active Substance: TRAMADOL
  2. K-DUR [Concomitant]
     Active Substance: POTASSIUM CHLORIDE
  3. OXYGEN. [Concomitant]
     Active Substance: OXYGEN
  4. XANAX [Concomitant]
     Active Substance: ALPRAZOLAM
  5. TORSEMIDE. [Concomitant]
     Active Substance: TORSEMIDE
  6. DEMADEX [Concomitant]
     Active Substance: TORSEMIDE
  7. INSULIN [Concomitant]
     Active Substance: INSULIN NOS
  8. ZANAFLEX [Concomitant]
     Active Substance: TIZANIDINE HYDROCHLORIDE
  9. ALLOPURINOL. [Concomitant]
     Active Substance: ALLOPURINOL
  10. TRACLEER [Suspect]
     Active Substance: BOSENTAN
     Indication: PULMONARY ARTERIAL HYPERTENSION
     Dosage: 125 MG, BID
     Route: 048
     Dates: start: 20020205
  11. CRESTOR [Concomitant]
     Active Substance: ROSUVASTATIN CALCIUM

REACTIONS (9)
  - Asthenia [Not Recovered/Not Resolved]
  - Portal hypertensive gastropathy [Unknown]
  - Haemoglobin decreased [Recovering/Resolving]
  - Malaise [Not Recovered/Not Resolved]
  - Liver disorder [Recovered/Resolved]
  - Knee arthroplasty [Recovered/Resolved]
  - Gastrointestinal haemorrhage [Recovered/Resolved]
  - Dyspnoea [Not Recovered/Not Resolved]
  - Transfusion [Recovering/Resolving]

NARRATIVE: CASE EVENT DATE: 20160314
